FAERS Safety Report 15232297 (Version 6)
Quarter: 2018Q4

REPORT INFORMATION
  Report Type: Spontaneous
  Country: DE (occurrence: DE)
  Receive Date: 20180802
  Receipt Date: 20181017
  Transmission Date: 20190204
  Serious: Yes (Hospitalization, Other)
  Sender: FDA-Public Use
  Company Number: PHHY2018DE044829

PATIENT
  Age: 80 Year
  Sex: Female

DRUGS (7)
  1. HYDROCHLOROTHIAZIDE. [Suspect]
     Active Substance: HYDROCHLOROTHIAZIDE
     Indication: HYPERTENSION
     Route: 065
  2. OLMESARTAN [Suspect]
     Active Substance: OLMESARTAN
     Indication: HYPERTENSION
     Dosage: 40 MG, UNK
     Route: 065
  3. INDAPAMIDE. [Suspect]
     Active Substance: INDAPAMIDE
     Indication: HYPERTENSION
     Route: 065
  4. BUDESONIDE. [Suspect]
     Active Substance: BUDESONIDE
     Indication: COLITIS MICROSCOPIC
     Route: 065
  5. INSULIN HUMAN [Suspect]
     Active Substance: INSULIN HUMAN
     Indication: PRODUCT USED FOR UNKNOWN INDICATION
     Route: 065
  6. LEVOTHYROXINE. [Suspect]
     Active Substance: LEVOTHYROXINE
     Indication: PRODUCT USED FOR UNKNOWN INDICATION
     Route: 065
  7. AMLODIPINE [Suspect]
     Active Substance: AMLODIPINE BESYLATE
     Indication: HYPERTENSION
     Dosage: UNK
     Route: 065

REACTIONS (19)
  - Dehydration [Recovering/Resolving]
  - Diarrhoea [Recovered/Resolved]
  - Mucosal dryness [Recovering/Resolving]
  - Lymphocytic infiltration [Recovering/Resolving]
  - Colitis microscopic [Recovered/Resolved]
  - Weight decreased [Recovered/Resolved]
  - Supraventricular extrasystoles [Recovered/Resolved]
  - Atrial fibrillation [Recovered/Resolved]
  - Abdominal rigidity [Recovered/Resolved]
  - Hypokalaemia [Recovered/Resolved]
  - Neutropenia [Recovered/Resolved]
  - Dizziness [Recovered/Resolved]
  - Malnutrition [Recovered/Resolved]
  - Lymphopenia [Recovering/Resolving]
  - Abdominal pain [Recovered/Resolved]
  - Protein deficiency [Recovered/Resolved]
  - Tachycardia [Recovered/Resolved]
  - Sprue-like enteropathy [Recovered/Resolved]
  - Intestinal villi atrophy [Recovering/Resolving]
